FAERS Safety Report 7210891-7 (Version None)
Quarter: 2011Q1

REPORT INFORMATION
  Report Type: 
  Country: None (occurrence: None)
  Receive Date: 20110105
  Receipt Date: 20101231
  Transmission Date: 20110831
  Serious: Yes (Death)
  Sender: FDA-Public Use
  Company Number: US-ASTRAZENECA-2011SE00218

PATIENT
  Age: 76 Year
  Sex: Female

DRUGS (7)
  1. METOPROLOL TARTRATE [Suspect]
     Route: 048
  2. ISRADIPINE [Suspect]
     Route: 048
  3. LOTENSIN [Suspect]
     Route: 048
  4. VALPROIC ACID [Suspect]
     Route: 048
  5. COLCHICINE [Suspect]
     Route: 048
  6. CLONAZEPAM [Suspect]
     Route: 048
  7. QUETIAPINE [Suspect]
     Route: 048

REACTIONS (3)
  - TOXICITY TO VARIOUS AGENTS [None]
  - CARDIO-RESPIRATORY ARREST [None]
  - COMPLETED SUICIDE [None]
